FAERS Safety Report 7043395-5 (Version None)
Quarter: 2010Q4

REPORT INFORMATION
  Report Type: 
  Country: None (occurrence: None)
  Receive Date: 20101013
  Receipt Date: 20101004
  Transmission Date: 20110411
  Serious: Yes (Other)
  Sender: FDA-Public Use
  Company Number: US-BAYER-201021144BCC

PATIENT
  Age: 43 Year
  Sex: Female
  Weight: 57 kg

DRUGS (7)
  1. ALEVE (CAPLET) [Suspect]
     Indication: ARTHRITIS
     Route: 065
     Dates: start: 20080101
  2. TYLENOL (CAPLET) [Suspect]
     Indication: BACK PAIN
     Route: 048
     Dates: start: 20090101
  3. TYLENOL (CAPLET) [Suspect]
     Dosage: AS USED: 650 MG  UNIT DOSE: 650 MG
     Route: 048
     Dates: start: 20100905
  4. TYLENOL (CAPLET) [Suspect]
     Dosage: TOTAL DAILY DOSE: 1300 MG  UNIT DOSE: 650 MG
     Route: 048
     Dates: start: 20080101, end: 20080101
  5. ZOLOFT [Concomitant]
  6. ALPRAZOLAM [Concomitant]
  7. LEVOTHYROXINE [Concomitant]

REACTIONS (1)
  - BLOOD URINE PRESENT [None]
